FAERS Safety Report 9288962 (Version 1)
Quarter: 2013Q2

REPORT INFORMATION
  Report Type: Spontaneous
  Country: US (occurrence: US)
  Receive Date: 20130514
  Receipt Date: 20130514
  Transmission Date: 20140414
  Serious: No
  Sender: FDA-Public Use
  Company Number: US-OPTIMER PHARMACEUTICALS, INC.-20120018

PATIENT
  Sex: 0

DRUGS (15)
  1. DIFICID [Suspect]
     Indication: CLOSTRIDIAL INFECTION
     Dosage: 200 MG, BID
     Route: 048
     Dates: start: 20110722, end: 20110731
  2. DIFICID [Suspect]
     Dosage: 200 MG, BID
     Route: 048
     Dates: start: 20110923, end: 20111002
  3. VANCOMYCIN [Concomitant]
     Indication: CLOSTRIDIAL INFECTION
     Dosage: UNK
     Route: 048
     Dates: start: 20110817, end: 201109
  4. REUTERI [Concomitant]
  5. SACCHAROMYCES BOULARDII [Concomitant]
  6. ACIDOPHILUS [Concomitant]
  7. BACILLUS COAGULANS [Concomitant]
  8. BYSTOLIC [Concomitant]
     Indication: HYPERTENSION
  9. SYNTHROID [Concomitant]
     Indication: THYROID DISORDER
  10. CYMBALTA [Concomitant]
     Indication: DEPRESSION
  11. CYMBALTA [Concomitant]
     Indication: ARTHRALGIA
  12. PLAVIX [Concomitant]
  13. DIOVAN [Concomitant]
     Indication: HYPERTENSION
  14. OMEGA 3 [Concomitant]
  15. CALCIUM CARBONATE [Concomitant]

REACTIONS (7)
  - Clostridium difficile infection [Recovered/Resolved]
  - Disease recurrence [Recovered/Resolved]
  - Abdominal pain [Recovered/Resolved]
  - Diarrhoea [Recovered/Resolved]
  - Irritable bowel syndrome [Unknown]
  - Large intestine polyp [Unknown]
  - Wrong technique in drug usage process [Recovered/Resolved]
